FAERS Safety Report 15897316 (Version 1)
Quarter: 2019Q1

REPORT INFORMATION
  Report Type: Spontaneous
  Country: AU (occurrence: AU)
  Receive Date: 20190131
  Receipt Date: 20190131
  Transmission Date: 20190417
  Serious: Yes (Hospitalization, Other)
  Sender: FDA-Public Use
  Company Number: AU-SUNOVION-2019DSP000979

PATIENT
  Age: 52 Year
  Sex: Female

DRUGS (1)
  1. LATUDA [Suspect]
     Active Substance: LURASIDONE HYDROCHLORIDE
     Indication: PSYCHOTIC DISORDER
     Dosage: 120 MG, SINGLE
     Route: 048
     Dates: start: 20181024

REACTIONS (2)
  - Rebound psychosis [Unknown]
  - Rash pruritic [Unknown]
